FAERS Safety Report 16032530 (Version 3)
Quarter: 2019Q3

REPORT INFORMATION
  Report Type: Report from Study
  Country: US (occurrence: US)
  Receive Date: 20190304
  Receipt Date: 20190918
  Transmission Date: 20191004
  Serious: Yes (Other)
  Sender: FDA-Public Use
  Company Number: PHEH2019US009383

PATIENT
  Sex: Female

DRUGS (1)
  1. ENTRESTO [Suspect]
     Active Substance: SACUBITRIL\VALSARTAN
     Indication: PRODUCT USED FOR UNKNOWN INDICATION
     Dosage: 100 MG (SACUBITRIL 49MG/VALSARTAN 51MG), UNK
     Route: 048

REACTIONS (4)
  - Cataract [Unknown]
  - Amnesia [Unknown]
  - Visual impairment [Unknown]
  - Vision blurred [Unknown]
